FAERS Safety Report 6307552-5 (Version None)
Quarter: 2009Q3

REPORT INFORMATION
  Report Type: 
  Country: None (occurrence: None)
  Receive Date: 20090811
  Receipt Date: 20090727
  Transmission Date: 20100115
  Serious: Yes (Other)
  Sender: FDA-Public Use
  Company Number: 2009US002893

PATIENT
  Sex: Female

DRUGS (1)
  1. PROTOPIC [Suspect]
     Indication: ROSACEA
     Dosage: UID/QD, TOPICAL
     Route: 061

REACTIONS (2)
  - COELIAC DISEASE [None]
  - OFF LABEL USE [None]
